FAERS Safety Report 7497098-3 (Version None)
Quarter: 2011Q2

REPORT INFORMATION
  Report Type: 
  Country: None (occurrence: None)
  Receive Date: 20110523
  Receipt Date: 20110512
  Transmission Date: 20111010
  Serious: Yes (Death, Hospitalization, Other)
  Sender: FDA-Public Use
  Company Number: US-BAXTER-2010BH017721

PATIENT
  Sex: Male

DRUGS (3)
  1. DIANEAL [Suspect]
     Indication: PERITONEAL DIALYSIS
     Route: 033
     Dates: start: 20070101
  2. DIANEAL [Suspect]
     Route: 033
     Dates: start: 20070101
  3. DIANEAL [Suspect]
     Route: 033
     Dates: start: 20070101

REACTIONS (8)
  - PANCREATITIS [None]
  - CARDIAC DISORDER [None]
  - MYOCARDIAL INFARCTION [None]
  - INTESTINAL FUNCTIONAL DISORDER [None]
  - CHEST PAIN [None]
  - HEPATIC FAILURE [None]
  - PERITONEAL INFECTION [None]
  - HAEMORRHAGE [None]
